FAERS Safety Report 5019509-5 (Version None)
Quarter: 2006Q2

REPORT INFORMATION
  Report Type: 
  Country: None (occurrence: None)
  Receive Date: 20060605
  Receipt Date: 20060605
  Transmission Date: 20061013
  Serious: Yes (Other)
  Sender: FDA-Public Use
  Company Number: None

PATIENT
  Age: 50 Year
  Sex: Female
  Weight: 49.4421 kg

DRUGS (1)
  1. BOTOX  ALLERGAN BOTOX COSMETIC, A   ALLERGAN [Suspect]
     Indication: SKIN COSMETIC PROCEDURE
     Dosage: ONE TIME IM
     Route: 030
     Dates: start: 20060517, end: 20060517

REACTIONS (7)
  - ANXIETY [None]
  - DIZZINESS [None]
  - FATIGUE [None]
  - HEADACHE [None]
  - IMPAIRED WORK ABILITY [None]
  - VISION BLURRED [None]
  - VISUAL FIELD DEFECT [None]
